FAERS Safety Report 24548155 (Version 2)
Quarter: 2024Q4

REPORT INFORMATION
  Report Type: Report from Study
  Country: ZA (occurrence: ZA)
  Receive Date: 20241025
  Receipt Date: 20241030
  Transmission Date: 20250114
  Serious: Yes (Other)
  Sender: NOVARTIS
  Company Number: ZA-002147023-NVSC2024ZA173626

PATIENT
  Age: 16 Year
  Sex: Female

DRUGS (1)
  1. COSENTYX [Suspect]
     Active Substance: SECUKINUMAB
     Indication: Juvenile idiopathic arthritis
     Dosage: 150 MG, QMO
     Route: 058
     Dates: start: 20240826

REACTIONS (4)
  - Syncope [Recovered/Resolved]
  - Ligament sprain [Unknown]
  - Pain [Unknown]
  - Syncope [Unknown]

NARRATIVE: CASE EVENT DATE: 20240827
